FAERS Safety Report 5948363-X (Version None)
Quarter: 2008Q4

REPORT INFORMATION
  Report Type: 
  Country: None (occurrence: None)
  Receive Date: 20081111
  Receipt Date: 20081028
  Transmission Date: 20090506
  Serious: Yes (Other)
  Sender: FDA-Public Use
  Company Number: US-AVENTIS-200718379US

PATIENT
  Sex: Male

DRUGS (12)
  1. KETEK [Suspect]
     Dates: start: 20051212, end: 20051216
  2. SINGULAIR [Concomitant]
     Dosage: DOSE: UNK
  3. LISINOPRIL [Concomitant]
     Dosage: DOSE: UNK
  4. FLONASE [Concomitant]
     Dosage: DOSE: UNK
  5. FLOMAX [Concomitant]
     Dosage: DOSE: UNK
  6. DARVOCET-N 100 [Concomitant]
     Dosage: DOSE: UNK
  7. TOLMETIN [Concomitant]
     Dosage: DOSE: UNK
  8. SONATA                             /01454001/ [Concomitant]
     Dosage: DOSE: UNK
  9. ZYRTEC [Concomitant]
     Dosage: DOSE: UNK
  10. AVAPRO [Concomitant]
     Dosage: DOSE: UNK
  11. CEFZIL [Concomitant]
     Dosage: DOSE QUANTITY: 250
     Dates: start: 20061120, end: 20061129
  12. CILOXAN [Concomitant]
     Indication: EYE DISORDER
     Route: 047

REACTIONS (16)
  - AUTOIMMUNE DISORDER [None]
  - BLOOD PRESSURE INCREASED [None]
  - CHRONIC HEPATITIS [None]
  - DEHYDRATION [None]
  - DEMYELINATION [None]
  - FEELING ABNORMAL [None]
  - HEPATITIS B ANTIBODY POSITIVE [None]
  - HEPATITIS B VIRUS TEST [None]
  - HEPATITIS C [None]
  - HEPATITIS C ANTIBODY POSITIVE [None]
  - INJURY [None]
  - INTERVERTEBRAL DISC PROTRUSION [None]
  - LIVER FUNCTION TEST ABNORMAL [None]
  - NEUROPATHY PERIPHERAL [None]
  - OEDEMA PERIPHERAL [None]
  - TUBULOINTERSTITIAL NEPHRITIS [None]
